FAERS Safety Report 9687405 (Version 1)
Quarter: 2013Q4

REPORT INFORMATION
  Report Type: Spontaneous
  Country: US (occurrence: US)
  Receive Date: 20131114
  Receipt Date: 20131114
  Transmission Date: 20140711
  Serious: No
  Sender: FDA-Public Use
  Company Number: US-009507513-1311USA004233

PATIENT
  Sex: Female

DRUGS (8)
  1. ASMANEX TWISTHALER [Suspect]
     Indication: COUGH
     Dosage: 110 MICROGRAM, 1 PUFF ONCE DAILY
  2. HYDROCHLOROTHIAZIDE [Concomitant]
  3. ZOCOR [Concomitant]
     Route: 048
  4. OMEPRAZOLE [Concomitant]
  5. JANUVIA [Concomitant]
     Route: 048
  6. METFORMIN [Concomitant]
  7. GLIPIZIDE [Concomitant]
  8. PRINIVIL [Concomitant]
     Route: 048

REACTIONS (2)
  - Drug ineffective [Recovering/Resolving]
  - Product quality issue [Unknown]
